FAERS Safety Report 8866371 (Version 3)
Quarter: 2013Q1

REPORT INFORMATION
  Report Type: Spontaneous
  Country: US (occurrence: US)
  Receive Date: 20121025
  Receipt Date: 20130104
  Transmission Date: 20140127
  Serious: Yes (Hospitalization)
  Sender: FDA-Public Use
  Company Number: US-ACTELION-A-US2012-73212

PATIENT
  Age: 61 Year
  Sex: Male

DRUGS (1)
  1. VENTAVIS [Suspect]
     Indication: PULMONARY ARTERIAL HYPERTENSION
     Dosage: 6 TIMES/DAY
     Route: 055

REACTIONS (3)
  - Coronary artery disease [Unknown]
  - Angina pectoris [Unknown]
  - Cardiac output increased [Unknown]
